FAERS Safety Report 18603392 (Version 3)
Quarter: 2024Q2

REPORT INFORMATION
  Report Type: Spontaneous
  Country: HR (occurrence: HR)
  Receive Date: 20201210
  Receipt Date: 20240412
  Transmission Date: 20240716
  Serious: Yes (Hospitalization)
  Sender: FDA-Public Use
  Company Number: HR-JNJFOC-20201204374

PATIENT
  Age: 55 Year
  Sex: Female

DRUGS (3)
  1. STELARA [Suspect]
     Active Substance: USTEKINUMAB
     Indication: Crohn^s disease
     Route: 040
     Dates: start: 20181120
  2. STELARA [Suspect]
     Active Substance: USTEKINUMAB
     Dosage: 90MG AT WEEK 0, WEEK 8 AND WEEK 12
     Route: 058
     Dates: end: 201908
  3. STELARA [Suspect]
     Active Substance: USTEKINUMAB
     Route: 058
     Dates: start: 202002

REACTIONS (2)
  - Rectal adenocarcinoma [Unknown]
  - Enterocolitis [Unknown]

NARRATIVE: CASE EVENT DATE: 20190801
